FAERS Safety Report 10524477 (Version 1)
Quarter: 2014Q4

REPORT INFORMATION
  Report Type: Spontaneous
  Country: US (occurrence: None)
  Receive Date: 20141015
  Receipt Date: 20141015
  Transmission Date: 20150528
  Serious: No
  Sender: FDA-Public Use
  Company Number: None

PATIENT
  Age: 83 Year
  Sex: Female
  Weight: 70.31 kg

DRUGS (1)
  1. TRAMADOL HCL [Suspect]
     Active Substance: TRAMADOL HYDROCHLORIDE
     Indication: PROCEDURAL PAIN
     Dosage: ONE OR TWO 4 TO 6 HRS TAKEN BY MOUTH
     Route: 048
     Dates: start: 20141002, end: 20141004

REACTIONS (6)
  - Vomiting [None]
  - Toxicity to various agents [None]
  - Somnolence [None]
  - Extra dose administered [None]
  - Malaise [None]
  - Poor quality sleep [None]

NARRATIVE: CASE EVENT DATE: 20141002
